FAERS Safety Report 6429209-2 (Version None)
Quarter: 2009Q4

REPORT INFORMATION
  Report Type: 
  Country: None (occurrence: None)
  Receive Date: 20091105
  Receipt Date: 20091022
  Transmission Date: 20100525
  Serious: Yes (Other)
  Sender: FDA-Public Use
  Company Number: PHHY2009JP44770

PATIENT
  Age: 70 Year
  Sex: Female

DRUGS (2)
  1. GLEEVEC [Suspect]
     Indication: CHRONIC MYELOID LEUKAEMIA
     Dosage: 400 MG, UNK
  2. GLEEVEC [Suspect]
     Dosage: 300 MG, UNK

REACTIONS (5)
  - CONJUNCTIVAL HAEMORRHAGE [None]
  - MUCOSAL HAEMORRHAGE [None]
  - RASH [None]
  - THROMBOCYTOPENIA [None]
  - TOXIC SKIN ERUPTION [None]
